FAERS Safety Report 4718978-5 (Version None)
Quarter: 2005Q3

REPORT INFORMATION
  Report Type: 
  Country: None (occurrence: None)
  Receive Date: 20050720
  Receipt Date: 20050712
  Transmission Date: 20060218
  Serious: Yes (Other)
  Sender: FDA-Public Use
  Company Number: US-MERCK-0507USA01588

PATIENT
  Age: 49 Year
  Sex: Female

DRUGS (3)
  1. VIOXX [Suspect]
     Indication: ARTHRITIS
     Route: 048
     Dates: start: 20040201, end: 20040930
  2. BENADRYL [Concomitant]
     Indication: ASTHMA
     Route: 065
  3. AZMACORT [Concomitant]
     Indication: ASTHMA
     Route: 065

REACTIONS (5)
  - CHEST PAIN [None]
  - EYE PAIN [None]
  - HYPOAESTHESIA [None]
  - MONOPLEGIA [None]
  - PARALYSIS [None]
